FAERS Safety Report 16374706 (Version 1)
Quarter: 2019Q2

REPORT INFORMATION
  Report Type: Spontaneous
  Country: CN (occurrence: CN)
  Receive Date: 20190530
  Receipt Date: 20190530
  Transmission Date: 20190711
  Serious: Yes (Other)
  Sender: FDA-Public Use
  Company Number: CN-BAXTER-2019BAX010499

PATIENT
  Age: 30 Year
  Sex: Female
  Weight: 63 kg

DRUGS (18)
  1. ENDOXAN [Suspect]
     Active Substance: CYCLOPHOSPHAMIDE
     Indication: BREAST CANCER FEMALE
     Dosage: DILUTED WITH NS, 1 AND 2 CHEMOTHERAPY
     Route: 042
  2. ENDOXAN [Suspect]
     Active Substance: CYCLOPHOSPHAMIDE
     Dosage: DOSE RE-INTRODUCED, DILUTED WITH NS
     Route: 042
  3. 0.9% SODIUM CHLORIDE INJECTION [Suspect]
     Active Substance: SODIUM CHLORIDE
     Dosage: WITH DOCETAXEL, 1,2 CHEMOTHERAPY
     Route: 041
  4. 0.9% SODIUM CHLORIDE INJECTION [Suspect]
     Active Substance: SODIUM CHLORIDE
     Dosage: WITH EPIRUBICIN HYDROCHLORIDE.
     Route: 041
     Dates: start: 20190408, end: 20190408
  5. 0.9% SODIUM CHLORIDE INJECTION [Suspect]
     Active Substance: SODIUM CHLORIDE
     Dosage: DOSE RE-INTRODUCED WITH DOCETAXEL.
     Route: 041
  6. 0.9% SODIUM CHLORIDE INJECTION [Suspect]
     Active Substance: SODIUM CHLORIDE
     Dosage: WITH EPIRUBICIN HYDROCHLORIDE, 1,2 CHEMOTHERAPY.
     Route: 041
  7. TAXOTERE [Suspect]
     Active Substance: DOCETAXEL
     Dosage: DILUTED WITH NS 250 ML
     Route: 041
     Dates: start: 20190408, end: 20190408
  8. TAXOTERE [Suspect]
     Active Substance: DOCETAXEL
     Dosage: DOSE RE-INTRODUCED, DILUTED WITH NS
     Route: 041
  9. ENDOXAN [Suspect]
     Active Substance: CYCLOPHOSPHAMIDE
     Dosage: DILUTED WITH 45 ML NS
     Route: 042
     Dates: start: 20190408, end: 20190408
  10. PHARMORUBICIN RD [Suspect]
     Active Substance: EPIRUBICIN
     Indication: BREAST CANCER FEMALE
     Dosage: DILUTED WITH NS, 1,2 CHEMOTHERAPY.
     Route: 041
  11. PHARMORUBICIN RD [Suspect]
     Active Substance: EPIRUBICIN
     Dosage: DILUTED WITH NS 100 ML
     Route: 041
     Dates: start: 20190408, end: 20190408
  12. 0.9% SODIUM CHLORIDE INJECTION [Suspect]
     Active Substance: SODIUM CHLORIDE
     Indication: MEDICATION DILUTION
     Dosage: WITH CYCLOPHOSPHAMIDE.
     Route: 042
     Dates: start: 20190408, end: 20190408
  13. 0.9% SODIUM CHLORIDE INJECTION [Suspect]
     Active Substance: SODIUM CHLORIDE
     Dosage: WITH DOCETAXEL.
     Route: 041
     Dates: start: 20190408, end: 20190408
  14. 0.9% SODIUM CHLORIDE INJECTION [Suspect]
     Active Substance: SODIUM CHLORIDE
     Dosage: DOSE RE-INTRODUCED WITH EPIRUBICIN HYDROCHLORIDE.
     Route: 041
  15. 0.9% SODIUM CHLORIDE INJECTION [Suspect]
     Active Substance: SODIUM CHLORIDE
     Dosage: WITH CYCLOPHOSPHAMIDE, 1,2 CHEMOTHERAPY.
     Route: 042
  16. PHARMORUBICIN RD [Suspect]
     Active Substance: EPIRUBICIN
     Dosage: DOSE RE-INTRODUCED, DILUTED WITH NS
     Route: 041
  17. TAXOTERE [Suspect]
     Active Substance: DOCETAXEL
     Indication: BREAST CANCER FEMALE
     Dosage: DILUTED WITH NS, 1,2 CHEMOTHERAPY
     Route: 041
  18. 0.9% SODIUM CHLORIDE INJECTION [Suspect]
     Active Substance: SODIUM CHLORIDE
     Dosage: DOSE RE-INTRODUCED WITH CYCLOPHOSPHAMIDE.
     Route: 042

REACTIONS (2)
  - Agranulocytosis [Recovered/Resolved]
  - Leukopenia [Recovered/Resolved]

NARRATIVE: CASE EVENT DATE: 20190415
